FAERS Safety Report 25861257 (Version 2)
Quarter: 2025Q4

REPORT INFORMATION
  Report Type: Spontaneous
  Country: EU (occurrence: EU)
  Receive Date: 20250929
  Receipt Date: 20251020
  Transmission Date: 20260118
  Serious: Yes (Hospitalization)
  Sender: BOEHRINGER INGELHEIM
  Company Number: None

PATIENT
  Age: 59 Year
  Sex: Male
  Weight: 80 kg

DRUGS (4)
  1. DABIGATRAN ETEXILATE [Suspect]
     Active Substance: DABIGATRAN ETEXILATE
     Indication: Atrial fibrillation
     Dates: start: 2025, end: 20250831
  2. FLECAINIDE ACETATE [Concomitant]
     Active Substance: FLECAINIDE ACETATE
     Indication: Atrial fibrillation
  3. BISOPROLOL FUMARATE [Concomitant]
     Active Substance: BISOPROLOL FUMARATE
     Indication: Atrial fibrillation
  4. LIPOROSA 20 mg/10 mg, capsule [Concomitant]
     Indication: Cardiovascular event prophylaxis

REACTIONS (2)
  - Duodenal ulcer perforation [Recovering/Resolving]
  - Shock haemorrhagic [Recovered/Resolved]

NARRATIVE: CASE EVENT DATE: 20250831
